FAERS Safety Report 4604693-5 (Version None)
Quarter: 2005Q1

REPORT INFORMATION
  Report Type: 
  Country: None (occurrence: None)
  Receive Date: 20050224
  Receipt Date: 20041124
  Transmission Date: 20050727
  Serious: No
  Sender: FDA-Public Use
  Company Number: SU-2004-002876

PATIENT
  Age: 79 Year
  Sex: Female
  Weight: 73.4827 kg

DRUGS (10)
  1. BENICAR [Suspect]
     Indication: HYPERTENSION
     Dosage: 20 MG QD PO
     Route: 048
     Dates: start: 20041123, end: 20040101
  2. BENICAR [Suspect]
     Indication: HYPERTENSION
     Dosage: 10 MG QD PO
     Route: 048
     Dates: start: 20040101
  3. ZANTAC [Concomitant]
  4. ASPIRIN [Concomitant]
  5. MIRALAX [Concomitant]
  6. FLAXSEED [Concomitant]
  7. VITAMIN A [Concomitant]
  8. VITAMIN C [Concomitant]
  9. VITAMIN E [Concomitant]
  10. VITAMIN D [Concomitant]

REACTIONS (1)
  - ASTHENIA [None]
